FAERS Safety Report 16388677 (Version 1)
Quarter: 2019Q3

REPORT INFORMATION
  Report Type: Spontaneous
  Country: US (occurrence: US)
  Receive Date: 20190602
  Receipt Date: 20190602
  Transmission Date: 20191004
  Serious: No
  Sender: FDA-Public Use
  Company Number: None

PATIENT
  Age: 28 Year
  Sex: Female
  Weight: 63 kg

DRUGS (10)
  1. FISH OIL [Concomitant]
     Active Substance: FISH OIL
  2. GABAPENTIN. [Concomitant]
     Active Substance: GABAPENTIN
  3. NOVOLOG [Concomitant]
     Active Substance: INSULIN ASPART
  4. ATORVASTATIN [Concomitant]
     Active Substance: ATORVASTATIN
  5. EYLEA [Suspect]
     Active Substance: AFLIBERCEPT
     Indication: DIABETIC RETINOPATHY
     Dates: start: 20190529, end: 20190529
  6. TRAMADOL. [Concomitant]
     Active Substance: TRAMADOL
  7. NEXPLANON [Concomitant]
     Active Substance: ETONOGESTREL
  8. MAGNESIUM [Concomitant]
     Active Substance: MAGNESIUM
  9. IMMUNE SUPPORT [Concomitant]
  10. MULTIVITAMIN [Concomitant]
     Active Substance: VITAMINS

REACTIONS (6)
  - Retinal disorder [None]
  - Visual acuity reduced [None]
  - Quality of life decreased [None]
  - Cataract [None]
  - Visual impairment [None]
  - Impaired driving ability [None]

NARRATIVE: CASE EVENT DATE: 20190529
